FAERS Safety Report 7702764-8 (Version None)
Quarter: 2011Q3

REPORT INFORMATION
  Report Type: 
  Country: None (occurrence: None)
  Receive Date: 20110817
  Receipt Date: 20110802
  Transmission Date: 20111222
  Serious: Yes (Death, Life-Threatening, Disabling, Other)
  Sender: FDA-Public Use
  Company Number: FK201101543

PATIENT
  Age: 60 Year
  Sex: Male

DRUGS (1)
  1. HEPARIN SODIUM [Suspect]
     Indication: PROPHYLAXIS
     Dosage: 14000 USP UNITS, 6000 USP UNITS

REACTIONS (10)
  - WHITE CLOT SYNDROME [None]
  - BRAIN DEATH [None]
  - TOE AMPUTATION [None]
  - INTRACARDIAC THROMBUS [None]
  - EMBOLIC STROKE [None]
  - HEPARIN-INDUCED THROMBOCYTOPENIA [None]
  - HEART TRANSPLANT [None]
  - PERIPHERAL ISCHAEMIA [None]
  - AORTIC THROMBOSIS [None]
  - COAGULATION TIME PROLONGED [None]
